FAERS Safety Report 9332053 (Version 1)
Quarter: 2013Q2

REPORT INFORMATION
  Report Type: Spontaneous
  Country: GB (occurrence: GB)
  Receive Date: 20130605
  Receipt Date: 20130605
  Transmission Date: 20140414
  Serious: Yes (Other)
  Sender: FDA-Public Use
  Company Number: GB-RB-1016-2004

PATIENT
  Sex: Female

DRUGS (1)
  1. SUBUTEX [Suspect]
     Indication: DRUG ABUSE
     Dosage: 8 - 10 MG ONCE A DAY
     Route: 064
     Dates: end: 20040613

REACTIONS (5)
  - Foetal exposure during pregnancy [Recovered/Resolved]
  - Agitation neonatal [Recovered/Resolved]
  - Tremor neonatal [Recovered/Resolved]
  - Grimacing [Recovered/Resolved]
  - Body temperature increased [Recovered/Resolved]
